FAERS Safety Report 15201596 (Version 1)
Quarter: 2018Q3

REPORT INFORMATION
  Report Type: Spontaneous
  Country: US (occurrence: US)
  Receive Date: 20180726
  Receipt Date: 20180726
  Transmission Date: 20181010
  Serious: No
  Sender: FDA-Public Use
  Company Number: US-ACCORD-056423

PATIENT
  Age: 50 Year
  Sex: Female
  Weight: 90.72 kg

DRUGS (1)
  1. LETROZOLE. [Suspect]
     Active Substance: LETROZOLE
     Indication: BREAST CANCER
     Dosage: 2.5 MG ONCE DAILY.
     Route: 048
     Dates: start: 2017

REACTIONS (1)
  - Hot flush [Not Recovered/Not Resolved]
